FAERS Safety Report 16850537 (Version 1)
Quarter: 2019Q3

REPORT INFORMATION
  Report Type: Spontaneous
  Country: US (occurrence: US)
  Receive Date: 20190925
  Receipt Date: 20190925
  Transmission Date: 20191005
  Serious: No
  Sender: FDA-Public Use
  Company Number: US-UPSHER-SMITH LABORATORIES, LLC-2018USL00640

PATIENT
  Sex: Female

DRUGS (2)
  1. BACLOFEN. [Suspect]
     Active Substance: BACLOFEN
     Route: 048
  2. BACLOFEN (UNSPECIFIED MANUFACTURER) [Suspect]
     Active Substance: BACLOFEN

REACTIONS (4)
  - Nausea [Unknown]
  - Dyspepsia [Unknown]
  - Pain [Unknown]
  - Vomiting [Unknown]
